FAERS Safety Report 6863523-1 (Version None)
Quarter: 2010Q3

REPORT INFORMATION
  Report Type: 
  Country: None (occurrence: None)
  Receive Date: 20100721
  Receipt Date: 20100713
  Transmission Date: 20110219
  Serious: Yes (Hospitalization)
  Sender: FDA-Public Use
  Company Number: DE-AMGEN-QUU424346

PATIENT
  Sex: Female
  Weight: 81 kg

DRUGS (6)
  1. ENBREL [Suspect]
     Indication: RHEUMATOID ARTHRITIS
     Route: 058
     Dates: start: 20091211, end: 20100402
  2. ARAVA [Concomitant]
     Indication: RHEUMATOID ARTHRITIS
     Dates: start: 20050101, end: 20100301
  3. ARAVA [Concomitant]
     Dates: start: 20100301
  4. VOLTAREN [Concomitant]
     Dates: start: 20000101, end: 20100221
  5. VOLTAREN [Concomitant]
     Dosage: GENERIC DICLOFENAC RETARD 75MG (FREQUENCY UNKNOWN)
     Dates: start: 20100222
  6. IDEOS [Concomitant]
     Indication: OSTEOPOROSIS PROPHYLAXIS
     Dates: start: 20000101

REACTIONS (1)
  - DEEP VEIN THROMBOSIS [None]
